FAERS Safety Report 16150965 (Version 1)
Quarter: 2019Q2

REPORT INFORMATION
  Report Type: Spontaneous
  Country: US (occurrence: US)
  Receive Date: 20190402
  Receipt Date: 20190402
  Transmission Date: 20190711
  Serious: No
  Sender: FDA-Public Use
  Company Number: None

PATIENT
  Sex: Male

DRUGS (2)
  1. CICLOPIROX. [Suspect]
     Active Substance: CICLOPIROX
  2. LOPROX [Suspect]
     Active Substance: CICLOPIROX\CICLOPIROX OLAMINE

REACTIONS (1)
  - Drug ineffective [None]
